FAERS Safety Report 7902538-9 (Version None)
Quarter: 2011Q4

REPORT INFORMATION
  Report Type: 
  Country: None (occurrence: None)
  Receive Date: 20111108
  Receipt Date: 20100524
  Transmission Date: 20120403
  Serious: No
  Sender: FDA-Public Use
  Company Number: US-BAYER-201023907NA

PATIENT

DRUGS (1)
  1. AVELOX [Suspect]

REACTIONS (2)
  - DIARRHOEA [None]
  - VOMITING [None]
